FAERS Safety Report 9896020 (Version 1)
Quarter: 2014Q1

REPORT INFORMATION
  Report Type: Spontaneous
  Country: US (occurrence: US)
  Receive Date: 20140213
  Receipt Date: 20140213
  Transmission Date: 20141002
  Serious: No
  Sender: FDA-Public Use
  Company Number: US-BRISTOL-MYERS SQUIBB COMPANY-18793935

PATIENT
  Age: 63 Year
  Sex: Female
  Weight: 95.24 kg

DRUGS (15)
  1. ABATACEPT SUBQ INJECTION 125MG/ML [Suspect]
     Indication: RHEUMATOID ARTHRITIS
     Route: 058
     Dates: start: 201209
  2. ACETYLSALICYLIC ACID [Concomitant]
  3. COQ10 [Concomitant]
  4. FENOFIBRATE [Concomitant]
  5. FLEXERIL [Concomitant]
  6. LEVOTHYROXIN [Concomitant]
  7. LISINOPRIL [Concomitant]
  8. ORENCIA [Concomitant]
  9. PREDNISONE [Concomitant]
  10. ULTRAM [Concomitant]
  11. VITAMIN C [Concomitant]
  12. VITAMIN D [Concomitant]
  13. VITAMIN E [Concomitant]
  14. ZYRTEC [Concomitant]
  15. CLARITIN [Concomitant]

REACTIONS (1)
  - Wound [Unknown]
